FAERS Safety Report 22116758 (Version 2)
Quarter: 2025Q3

REPORT INFORMATION
  Report Type: Spontaneous
  Country: US (occurrence: US)
  Receive Date: 20230320
  Receipt Date: 20250908
  Transmission Date: 20251021
  Serious: No
  Sender: ASCEND THERAPEUTICS US, LLC
  Company Number: US-Ascend Therapeutics US, LLC-2139296

PATIENT

DRUGS (2)
  1. ANDROGEL [Suspect]
     Active Substance: TESTOSTERONE
     Indication: Product used for unknown indication
  2. ANDROGEL [Suspect]
     Active Substance: TESTOSTERONE

REACTIONS (2)
  - Drug delivery system malfunction [Unknown]
  - Incorrect dose administered [Unknown]
